FAERS Safety Report 11654692 (Version 1)
Quarter: 2015Q4

REPORT INFORMATION
  Report Type: Spontaneous
  Country: US (occurrence: None)
  Receive Date: 20151022
  Receipt Date: 20151022
  Transmission Date: 20160304
  Serious: Yes (Disabling)
  Sender: FDA-Public Use
  Company Number: None

PATIENT
  Age: 82 Year
  Sex: Female
  Weight: 65.77 kg

DRUGS (11)
  1. DULOXETINE. [Concomitant]
     Active Substance: DULOXETINE
  2. LEVETIRACETAM. [Suspect]
     Active Substance: LEVETIRACETAM
     Indication: TOXIC EPIDERMAL NECROLYSIS
     Dosage: DOCTOR SAID NOT TO STOP TAKING THE MEDICINE
     Route: 048
     Dates: start: 20150611
  3. LEVETIRACETAM. [Suspect]
     Active Substance: LEVETIRACETAM
     Indication: STEVENS-JOHNSON SYNDROME
     Dosage: DOCTOR SAID NOT TO STOP TAKING THE MEDICINE
     Route: 048
     Dates: start: 20150611
  4. LEVETIRACETAM. [Concomitant]
     Active Substance: LEVETIRACETAM
  5. NASACORT [Concomitant]
     Active Substance: TRIAMCINOLONE ACETONIDE
  6. VITAMIN D400 [Concomitant]
  7. VITAMIN D3 [Concomitant]
     Active Substance: CHOLECALCIFEROL
  8. DONEPEZIL. [Concomitant]
     Active Substance: DONEPEZIL
  9. VITAMIN 1000MG [Concomitant]
  10. HYDROXYUREA. [Concomitant]
     Active Substance: HYDROXYUREA
  11. VITAMIN C [Concomitant]
     Active Substance: ASCORBIC ACID

REACTIONS (17)
  - Pruritus [None]
  - Asthenia [None]
  - Amnesia [None]
  - Coordination abnormal [None]
  - Lip swelling [None]
  - Visual impairment [None]
  - Dyspnoea [None]
  - Hyperacusis [None]
  - Blister [None]
  - Cough [None]
  - Abdominal pain upper [None]
  - Skin burning sensation [None]
  - Insomnia [None]
  - Restlessness [None]
  - Dizziness [None]
  - Contusion [None]
  - Hypertension [None]

NARRATIVE: CASE EVENT DATE: 20150614
